FAERS Safety Report 16181585 (Version 2)
Quarter: 2019Q2

REPORT INFORMATION
  Report Type: Report from Study
  Country: None (occurrence: US)
  Receive Date: 20190410
  Receipt Date: 20190412
  Transmission Date: 20190711
  Serious: Yes (Other)
  Sender: FDA-Public Use
  Company Number: US-ABBVIE-19K-163-2737671-00

PATIENT
  Age: 39 Year
  Sex: Female

DRUGS (1)
  1. HUMIRA [Suspect]
     Active Substance: ADALIMUMAB
     Indication: PSORIASIS
     Dosage: CITRATE FREE
     Route: 058
     Dates: start: 20180916, end: 201902

REACTIONS (4)
  - Weight increased [Unknown]
  - Hepatic cirrhosis [Not Recovered/Not Resolved]
  - Diabetes mellitus [Unknown]
  - Abdominal distension [Unknown]

NARRATIVE: CASE EVENT DATE: 201901
